FAERS Safety Report 21657681 (Version 1)
Quarter: 2022Q4

REPORT INFORMATION
  Report Type: Spontaneous
  Country: ZA (occurrence: ZA)
  Receive Date: 20221129
  Receipt Date: 20221129
  Transmission Date: 20230112
  Serious: Yes (Other)
  Sender: FDA-Public Use
  Company Number: ZA-002147023-NVSC2022ZA264197

PATIENT
  Age: 16 Year
  Sex: Male

DRUGS (1)
  1. FEMARA [Suspect]
     Active Substance: LETROZOLE
     Indication: Short stature
     Dosage: UNK
     Route: 048

REACTIONS (2)
  - Avulsion fracture [Unknown]
  - Product use in unapproved indication [Unknown]
